FAERS Safety Report 10208394 (Version 2)
Quarter: 2014Q2

REPORT INFORMATION
  Report Type: Spontaneous
  Country: US (occurrence: US)
  Receive Date: 20140530
  Receipt Date: 20140530
  Transmission Date: 20141212
  Serious: Yes (Death, Hospitalization)
  Sender: FDA-Public Use
  Company Number: US-GLAXOSMITHKLINE-A0770500A

PATIENT
  Age: 59 Year
  Sex: Male
  Weight: 131.8 kg

DRUGS (1)
  1. AVANDIA [Suspect]
     Indication: DIABETES MELLITUS
     Dosage: 4MG TWICE PER DAY
     Route: 048
     Dates: start: 200007, end: 200207

REACTIONS (5)
  - Death [Fatal]
  - Myocardial ischaemia [Unknown]
  - Myocardial infarction [Unknown]
  - Thrombosis [Unknown]
  - Cardiac failure congestive [Unknown]
